FAERS Safety Report 6661125-3 (Version None)
Quarter: 2010Q1

REPORT INFORMATION
  Report Type: 
  Country: None (occurrence: None)
  Receive Date: 20100331
  Receipt Date: 20100318
  Transmission Date: 20100710
  Serious: Yes (Life-Threatening, Hospitalization)
  Sender: FDA-Public Use
  Company Number: US-ABBOTT-09P-163-0568685-00

PATIENT
  Sex: Female
  Weight: 70 kg

DRUGS (15)
  1. HUMIRA [Suspect]
     Indication: RHEUMATOID ARTHRITIS
     Route: 058
     Dates: start: 20000912, end: 20090323
  2. METHOTREXATE [Concomitant]
     Indication: RHEUMATOID ARTHRITIS
     Route: 048
     Dates: start: 20040908, end: 20090323
  3. ATORVASTATIN CALCIUM [Concomitant]
     Indication: HYPERCHOLESTEROLAEMIA
     Route: 048
     Dates: start: 20031117
  4. ATORVASTATIN CALCIUM [Concomitant]
     Indication: PROPHYLAXIS
  5. ATENOLOL [Concomitant]
     Indication: PROPHYLAXIS
     Route: 048
     Dates: start: 20031117, end: 20080908
  6. ATENOLOL [Concomitant]
     Indication: HYPERTENSION
     Route: 048
     Dates: start: 20080909
  7. SIMVASTATIN [Concomitant]
     Indication: PROPHYLAXIS
     Dates: start: 20090101
  8. SIMVASTATIN [Concomitant]
     Indication: BLOOD CHOLESTEROL INCREASED
  9. HYDROCHLOROTHIAZIDE [Concomitant]
     Indication: PROPHYLAXIS
     Dates: start: 20081215
  10. HYDROCHLOROTHIAZIDE [Concomitant]
     Indication: HYPERTENSION
  11. POTASSIUM CHLORIDE [Concomitant]
     Indication: PROPHYLAXIS
     Dates: start: 20081215
  12. POTASSIUM CHLORIDE [Concomitant]
     Indication: BLOOD POTASSIUM DECREASED
  13. FOLIC ACID [Concomitant]
     Indication: RHEUMATOID ARTHRITIS
     Dates: start: 19890101
  14. FOLIC ACID [Concomitant]
     Indication: VITAMIN SUPPLEMENTATION
  15. LEVAQUIN [Concomitant]
     Indication: URINARY TRACT INFECTION
     Route: 048

REACTIONS (29)
  - AMNESIA [None]
  - AORTIC VALVE INCOMPETENCE [None]
  - ATELECTASIS [None]
  - COLLAPSE OF LUNG [None]
  - CONDUCTION DISORDER [None]
  - CONSTIPATION [None]
  - DECREASED APPETITE [None]
  - DEMENTIA [None]
  - EXOPHTHALMOS [None]
  - FATIGUE [None]
  - GAIT DISTURBANCE [None]
  - HEADACHE [None]
  - HYPOPHAGIA [None]
  - LETHARGY [None]
  - MALIGNANT PLEURAL EFFUSION [None]
  - MENTAL STATUS CHANGES [None]
  - MITRAL VALVE CALCIFICATION [None]
  - MITRAL VALVE INCOMPETENCE [None]
  - NAUSEA [None]
  - NEUTROPENIA [None]
  - NON-HODGKIN'S LYMPHOMA [None]
  - OEDEMA PERIPHERAL [None]
  - PERICARDIAL EFFUSION [None]
  - PNEUMONIA [None]
  - PROTHROMBIN TIME PROLONGED [None]
  - PULMONARY VALVE INCOMPETENCE [None]
  - TRICUSPID VALVE INCOMPETENCE [None]
  - URINARY TRACT INFECTION [None]
  - WEIGHT DECREASED [None]
